FAERS Safety Report 24901120 (Version 1)
Quarter: 2025Q1

REPORT INFORMATION
  Report Type: Spontaneous
  Country: US (occurrence: US)
  Receive Date: 20250129
  Receipt Date: 20250129
  Transmission Date: 20250409
  Serious: No
  Sender: GRIFOLS
  Company Number: US-IGSA-BIG0032705

PATIENT
  Age: 85 Year
  Sex: Female

DRUGS (2)
  1. XEMBIFY [Suspect]
     Active Substance: HUMAN IMMUNOGLOBULIN G
     Dosage: 4 GRAM, Q.WK.
     Route: 042
     Dates: start: 20250114
  2. XEMBIFY [Suspect]
     Active Substance: HUMAN IMMUNOGLOBULIN G
     Dates: start: 202201

REACTIONS (3)
  - Infusion site reaction [Recovered/Resolved]
  - Wound [Recovered/Resolved]
  - Chemical burn [Recovered/Resolved]

NARRATIVE: CASE EVENT DATE: 20250114
